FAERS Safety Report 7227840-8 (Version None)
Quarter: 2011Q1

REPORT INFORMATION
  Report Type: 
  Country: None (occurrence: None)
  Receive Date: 20110114
  Receipt Date: 20110104
  Transmission Date: 20110831
  Serious: Yes (Hospitalization)
  Sender: FDA-Public Use
  Company Number: US-JNJFOC-20110100912

PATIENT
  Age: 30 Year
  Sex: Female
  Weight: 129 kg

DRUGS (4)
  1. DARVOCET [Suspect]
     Indication: DENTAL DISCOMFORT
  2. TYLENOL-500 [Suspect]
     Route: 048
  3. TYLENOL-500 [Suspect]
     Indication: DENTAL DISCOMFORT
     Route: 048
  4. EFFEXOR [Concomitant]
     Indication: DEPRESSION

REACTIONS (4)
  - MULTIPLE DRUG OVERDOSE ACCIDENTAL [None]
  - DRUG ADMINISTRATION ERROR [None]
  - VOMITING [None]
  - ABDOMINAL PAIN [None]
